FAERS Safety Report 8049548-1 (Version None)
Quarter: 2011Q4

REPORT INFORMATION
  Report Type: 
  Country: None (occurrence: None)
  Receive Date: 20111229
  Receipt Date: 20111219
  Transmission Date: 20120403
  Serious: Yes (Hospitalization)
  Sender: FDA-Public Use
  Company Number: 2011PROUSA00867

PATIENT
  Age: 69 Year
  Sex: Male

DRUGS (2)
  1. PROVENGE [Suspect]
     Dosage: 250 ML, SINGLE, INTRAVENOUS
     Route: 042
     Dates: start: 20111201, end: 20111201
  2. PROVENGE [Suspect]
     Indication: PROSTATE CANCER METASTATIC
     Dosage: 250 ML, SINGLE, INTRAVENOUS
     Route: 042
     Dates: start: 20111117, end: 20111117

REACTIONS (5)
  - DYSPNOEA [None]
  - STAPHYLOCOCCUS TEST POSITIVE [None]
  - HEMIPARESIS [None]
  - PRODUCT STERILITY LACKING [None]
  - PNEUMONIA [None]
